FAERS Safety Report 6467871-9 (Version None)
Quarter: 2009Q4

REPORT INFORMATION
  Report Type: 
  Country: None (occurrence: None)
  Receive Date: 20091202
  Receipt Date: 20081118
  Transmission Date: 20100525
  Serious: No
  Sender: FDA-Public Use
  Company Number: US-AMGEN-KDL319542

PATIENT
  Sex: Female

DRUGS (4)
  1. ENBREL [Suspect]
     Indication: RHEUMATOID ARTHRITIS
     Route: 058
     Dates: start: 20040213
  2. ARAVA [Concomitant]
     Route: 048
  3. VOLTAREN [Concomitant]
  4. LIDODERM [Concomitant]

REACTIONS (4)
  - BURSITIS [None]
  - RHEUMATOID ARTHRITIS [None]
  - SCIATICA [None]
  - SICCA SYNDROME [None]
